FAERS Safety Report 14310607 (Version 1)
Quarter: 2017Q4

REPORT INFORMATION
  Report Type: Spontaneous
  Country: US (occurrence: US)
  Receive Date: 20171220
  Receipt Date: 20171220
  Transmission Date: 20180321
  Serious: Yes (Other)
  Sender: FDA-Public Use
  Company Number: US-MALLINCKRODT-T201705193

PATIENT

DRUGS (2)
  1. RAPLIXA [Suspect]
     Active Substance: FIBRIN SEALANT (HUMAN)
     Indication: FACE LIFT
     Dosage: UNK
     Route: 065
  2. RAPLIXA [Suspect]
     Active Substance: FIBRIN SEALANT (HUMAN)
     Indication: NECK LIFT

REACTIONS (1)
  - Mycobacterium chelonae infection [Recovered/Resolved]
